FAERS Safety Report 9919098 (Version 1)
Quarter: 2014Q1

REPORT INFORMATION
  Report Type: Spontaneous
  Country: US (occurrence: US)
  Receive Date: 20140224
  Receipt Date: 20140224
  Transmission Date: 20141002
  Serious: No
  Sender: FDA-Public Use
  Company Number: US-PFIZER INC-2014045371

PATIENT
  Age: 46 Year
  Sex: Female

DRUGS (7)
  1. LYRICA [Suspect]
     Indication: FIBROMYALGIA
     Dosage: 150 MG, 4X/DAY
     Route: 048
  2. TRAMADOL HYDROCHLORIDE [Concomitant]
     Indication: PAIN
     Dosage: 50 MG, 1-2 TABLET AS NEEDED EVERY 8 HOURS
  3. DIFLUCAN [Concomitant]
     Dosage: 150 MG, 1X/DAY
  4. HYDROCODONE W/ACETAMINOPHEN [Concomitant]
     Dosage: 5-325 MG, TWICE A DAY (020) AS NEEDED (010)
  5. BENAZEPRIL HYDROCHLORIDE [Concomitant]
     Dosage: 20 MG, 1X/DAY
  6. DILTIAZEM HYDROCHLORIDE [Concomitant]
     Dosage: 90 MG, 2X/DAY BEFORE MEAL AND AT BEDTIME
  7. PREVACID [Concomitant]
     Dosage: 90 MG, 2X/DAY

REACTIONS (9)
  - Upper respiratory tract infection [Unknown]
  - Tooth infection [Unknown]
  - Headache [Unknown]
  - Back pain [Unknown]
  - Musculoskeletal pain [Unknown]
  - Insomnia [Unknown]
  - Depression [Unknown]
  - Tympanic membrane disorder [Unknown]
  - Drug ineffective [Unknown]
